FAERS Safety Report 23771848 (Version 1)
Quarter: 2024Q2

REPORT INFORMATION
  Report Type: Spontaneous
  Country: RU (occurrence: RU)
  Receive Date: 20240423
  Receipt Date: 20240423
  Transmission Date: 20240716
  Serious: Yes (Other)
  Sender: FDA-Public Use
  Company Number: RU-AMGEN-RUSSP2024076722

PATIENT
  Age: 15 Year
  Sex: Male

DRUGS (13)
  1. FILGRASTIM [Suspect]
     Active Substance: FILGRASTIM
     Indication: Leukopenia
     Dosage: 300 MICROGRAM
     Route: 065
  2. FILGRASTIM [Suspect]
     Active Substance: FILGRASTIM
     Indication: Off label use
  3. PREDNISOLONE [Concomitant]
     Active Substance: PREDNISOLONE
     Indication: Immunosuppressant drug therapy
     Dosage: 7.5 MILLIGRAM, QD
  4. PREDNISOLONE [Concomitant]
     Active Substance: PREDNISOLONE
     Dosage: DOSE REDUCED
  5. CEFAZOLIN [Concomitant]
     Active Substance: CEFAZOLIN
     Indication: Prophylaxis
     Dosage: 1 GRAM, Q8H
  6. SOLU-MEDROL [Concomitant]
     Active Substance: METHYLPREDNISOLONE SODIUM SUCCINATE
     Indication: Immunosuppressant drug therapy
     Dosage: 100 MILLIGRAM, QD
  7. FLUCONAZOLE [Concomitant]
     Active Substance: FLUCONAZOLE
     Indication: Antifungal prophylaxis
     Dosage: 600 MILLIGRAM
  8. FLUCONAZOLE [Concomitant]
     Active Substance: FLUCONAZOLE
     Dosage: 300 MILLIGRAM, QD
  9. HEPARIN [Concomitant]
     Active Substance: HEPARIN SODIUM
     Dosage: 10-18 U/KG/HOUR
  10. HEPARIN [Concomitant]
     Active Substance: HEPARIN SODIUM
     Dosage: DOSE INCREASED
  11. POLYMYXIN B [Concomitant]
     Active Substance: POLYMYXIN B
     Dosage: 50 MILLIGRAM, Q12H
  12. AVIBACTAM SODIUM\CEFTAZIDIME [Concomitant]
     Active Substance: AVIBACTAM SODIUM\CEFTAZIDIME
     Indication: Antibiotic therapy
     Dosage: 1250 MILLIGRAM, Q8H
     Route: 065
  13. AZTREONAM [Concomitant]
     Active Substance: AZTREONAM
     Indication: Antibiotic therapy
     Dosage: 1 GRAM, Q8H

REACTIONS (4)
  - Klebsiella sepsis [Unknown]
  - Pelvic venous thrombosis [Unknown]
  - Procedural haemorrhage [Unknown]
  - Off label use [Unknown]
